FAERS Safety Report 9022560 (Version 1)
Quarter: 2013Q1

REPORT INFORMATION
  Report Type: Spontaneous
  Country: US (occurrence: US)
  Receive Date: 20130118
  Receipt Date: 20130118
  Transmission Date: 20140127
  Serious: No
  Sender: FDA-Public Use
  Company Number: US-GLAXOSMITHKLINE-A0978077A

PATIENT
  Sex: Female

DRUGS (6)
  1. PROMACTA [Suspect]
     Dosage: 50MG PER DAY
     Route: 048
     Dates: start: 201108
  2. TRAMADOL HCL [Concomitant]
     Route: 048
  3. VITAMIN D [Concomitant]
     Route: 048
  4. ONE A DAY VITAMIN [Concomitant]
     Route: 048
  5. CALCIUM + D [Concomitant]
     Route: 048
  6. ACETAMIN [Concomitant]
     Route: 048

REACTIONS (3)
  - Cluster headache [Unknown]
  - Aura [Unknown]
  - Photopsia [Unknown]
